FAERS Safety Report 8464026-3 (Version None)
Quarter: 2012Q2

REPORT INFORMATION
  Report Type: 
  Country: None (occurrence: None)
  Receive Date: 20120625
  Receipt Date: 20120620
  Transmission Date: 20120825
  Serious: Yes (Other)
  Sender: FDA-Public Use
  Company Number: US-PFIZER INC-2012149261

PATIENT
  Sex: Female
  Weight: 56.689 kg

DRUGS (4)
  1. VITAMIN B-12 [Concomitant]
     Dosage: 1000 MG, UNK
     Route: 048
     Dates: start: 20120101
  2. LIPITOR [Suspect]
     Indication: BLOOD CHOLESTEROL INCREASED
     Dosage: 20 MG, DAILY
     Dates: start: 20060101
  3. CELEBREX [Suspect]
     Indication: OSTEOPOROSIS
     Dosage: 200 MG, 2X/DAY
     Dates: start: 20060101
  4. VITAMIN B-12 [Concomitant]
     Dosage: 2000 UG, UNK
     Dates: start: 20120101

REACTIONS (2)
  - PNEUMONIA [None]
  - RIB FRACTURE [None]
